FAERS Safety Report 24409155 (Version 3)
Quarter: 2024Q4

REPORT INFORMATION
  Report Type: Report from Study
  Country: US (occurrence: US)
  Receive Date: 20241008
  Receipt Date: 20241105
  Transmission Date: 20250114
  Serious: No
  Sender: JOHNSON AND JOHNSON
  Company Number: US-JNJFOC-20240929777

PATIENT
  Age: 13 Year
  Sex: Male

DRUGS (3)
  1. STELARA [Suspect]
     Active Substance: USTEKINUMAB
     Indication: Psoriasis
     Dosage: STRENGTH: 45.00 MG / 0.50 ML?THEN WEEK 4(FUTURE) THEN EVERY 12 WEEKS(FUTURE)
     Route: 058
  2. STELARA [Suspect]
     Active Substance: USTEKINUMAB
  3. TALTZ [Concomitant]
     Active Substance: IXEKIZUMAB
     Dosage: TALTZ AUTO INJ (1-PAK)

REACTIONS (3)
  - Needle issue [Unknown]
  - Product dose omission issue [Unknown]
  - Syringe issue [Unknown]

NARRATIVE: CASE EVENT DATE: 20240911
